FAERS Safety Report 24065870 (Version 1)
Quarter: 2024Q3

REPORT INFORMATION
  Report Type: Spontaneous
  Country: CN (occurrence: CN)
  Receive Date: 20240709
  Receipt Date: 20240709
  Transmission Date: 20241017
  Serious: Yes (Other)
  Sender: FRESENIUS KABI
  Company Number: CN-FreseniusKabi-FK202410443

PATIENT
  Age: 73 Year
  Sex: Male
  Weight: 49 kg

DRUGS (1)
  1. SMOFLIPID [Suspect]
     Active Substance: FISH OIL\MEDIUM-CHAIN TRIGLYCERIDES\OLIVE OIL\SOYBEAN OIL
     Indication: Symptomatic treatment
     Dosage: FORM OF ADMIN: INJECTION
     Route: 041
     Dates: start: 20240629, end: 20240629

REACTIONS (3)
  - Chills [Recovering/Resolving]
  - Pyrexia [Recovered/Resolved]
  - Temperature intolerance [Recovering/Resolving]

NARRATIVE: CASE EVENT DATE: 20240629
